FAERS Safety Report 25592124 (Version 1)
Quarter: 2025Q3

REPORT INFORMATION
  Report Type: Spontaneous
  Country: US (occurrence: US)
  Receive Date: 20250722
  Receipt Date: 20250722
  Transmission Date: 20251021
  Serious: Yes (Hospitalization)
  Sender: BAYER HEALTHCARE PHARMACEUTICALS INC.
  Company Number: US-BAYER-2025A091080

PATIENT

DRUGS (8)
  1. STIVARGA [Interacting]
     Active Substance: REGORAFENIB MONOHYDRATE
     Indication: Metastases to lung
  2. STIVARGA [Interacting]
     Active Substance: REGORAFENIB MONOHYDRATE
     Indication: Osteosarcoma metastatic
  3. IVERMECTIN [Interacting]
     Active Substance: IVERMECTIN
     Indication: Metastases to lung
  4. IVERMECTIN [Interacting]
     Active Substance: IVERMECTIN
     Indication: Osteosarcoma metastatic
  5. GEMCITABINE [Concomitant]
     Active Substance: GEMCITABINE
     Indication: Metastases to lung
  6. GEMCITABINE [Concomitant]
     Active Substance: GEMCITABINE
     Indication: Osteosarcoma metastatic
  7. DOCETAXEL [Concomitant]
     Active Substance: DOCETAXEL
     Indication: Metastases to lung
  8. DOCETAXEL [Concomitant]
     Active Substance: DOCETAXEL
     Indication: Osteosarcoma metastatic

REACTIONS (10)
  - Intentional product misuse [None]
  - Neurotoxicity [Recovering/Resolving]
  - Drug interaction [None]
  - Product use in unapproved indication [None]
  - Product use issue [None]
  - Decreased appetite [None]
  - Nausea [Recovering/Resolving]
  - Fatigue [None]
  - Presyncope [None]
  - Product prescribing issue [None]
